FAERS Safety Report 20748191 (Version 5)
Quarter: 2022Q2

REPORT INFORMATION
  Report Type: Report from Study
  Country: DE (occurrence: DE)
  Receive Date: 20220426
  Receipt Date: 20220628
  Transmission Date: 20220721
  Serious: Yes (Other)
  Sender: FDA-Public Use
  Company Number: DE-TAKEDA-2022TUS027394

PATIENT
  Age: 80 Year
  Sex: Female

DRUGS (49)
  1. TEDUGLUTIDE [Suspect]
     Active Substance: TEDUGLUTIDE
     Indication: Short-bowel syndrome
     Dosage: 3.25 MILLIGRAM, QD
     Route: 042
     Dates: start: 20161128, end: 20161211
  2. TEDUGLUTIDE [Suspect]
     Active Substance: TEDUGLUTIDE
     Indication: Short-bowel syndrome
     Dosage: 3.25 MILLIGRAM, QD
     Route: 042
     Dates: start: 20161128, end: 20161211
  3. TEDUGLUTIDE [Suspect]
     Active Substance: TEDUGLUTIDE
     Indication: Short-bowel syndrome
     Dosage: 3.25 MILLIGRAM, QD
     Route: 042
     Dates: start: 20161128, end: 20161211
  4. TEDUGLUTIDE [Suspect]
     Active Substance: TEDUGLUTIDE
     Indication: Short-bowel syndrome
     Dosage: 3.25 MILLIGRAM, QD
     Route: 042
     Dates: start: 20161128, end: 20161211
  5. TEDUGLUTIDE [Suspect]
     Active Substance: TEDUGLUTIDE
     Dosage: 1.67 MILLIGRAM, QD
     Route: 042
     Dates: start: 20161212, end: 201704
  6. TEDUGLUTIDE [Suspect]
     Active Substance: TEDUGLUTIDE
     Dosage: 1.67 MILLIGRAM, QD
     Route: 042
     Dates: start: 20161212, end: 201704
  7. TEDUGLUTIDE [Suspect]
     Active Substance: TEDUGLUTIDE
     Dosage: 1.67 MILLIGRAM, QD
     Route: 042
     Dates: start: 20161212, end: 201704
  8. TEDUGLUTIDE [Suspect]
     Active Substance: TEDUGLUTIDE
     Dosage: 1.67 MILLIGRAM, QD
     Route: 042
     Dates: start: 20161212, end: 201704
  9. TEDUGLUTIDE [Suspect]
     Active Substance: TEDUGLUTIDE
     Dosage: 3.29 MILLIGRAM, QD
     Route: 042
     Dates: start: 201704, end: 201705
  10. TEDUGLUTIDE [Suspect]
     Active Substance: TEDUGLUTIDE
     Dosage: 3.29 MILLIGRAM, QD
     Route: 042
     Dates: start: 201704, end: 201705
  11. TEDUGLUTIDE [Suspect]
     Active Substance: TEDUGLUTIDE
     Dosage: 3.29 MILLIGRAM, QD
     Route: 042
     Dates: start: 201704, end: 201705
  12. TEDUGLUTIDE [Suspect]
     Active Substance: TEDUGLUTIDE
     Dosage: 3.29 MILLIGRAM, QD
     Route: 042
     Dates: start: 201704, end: 201705
  13. TEDUGLUTIDE [Suspect]
     Active Substance: TEDUGLUTIDE
     Dosage: 1.6 MILLIGRAM, QD
     Route: 042
     Dates: start: 20170501, end: 20171011
  14. TEDUGLUTIDE [Suspect]
     Active Substance: TEDUGLUTIDE
     Dosage: 1.6 MILLIGRAM, QD
     Route: 042
     Dates: start: 20170501, end: 20171011
  15. TEDUGLUTIDE [Suspect]
     Active Substance: TEDUGLUTIDE
     Dosage: 1.6 MILLIGRAM, QD
     Route: 042
     Dates: start: 20170501, end: 20171011
  16. TEDUGLUTIDE [Suspect]
     Active Substance: TEDUGLUTIDE
     Dosage: 1.6 MILLIGRAM, QD
     Route: 042
     Dates: start: 20170501, end: 20171011
  17. URAPIDIL [Concomitant]
     Active Substance: URAPIDIL
     Indication: Hypertension
     Dosage: 30 MILLIGRAM, QD
     Route: 065
     Dates: start: 201908
  18. CALCIUM [Concomitant]
     Active Substance: CALCIUM
     Indication: Vitamin D deficiency
     Dosage: UNK UNK, BID
     Route: 048
     Dates: start: 201908
  19. CALCIUM CARBONATE\CHOLECALCIFEROL [Concomitant]
     Active Substance: CALCIUM CARBONATE\CHOLECALCIFEROL
     Indication: Vitamin D deficiency
     Dosage: 1000 INTERNATIONAL UNIT
     Route: 048
     Dates: start: 20190422
  20. SELENIUM [Concomitant]
     Active Substance: SELENIUM
     Indication: Blood selenium decreased
     Dosage: 100 MICROGRAM
     Route: 048
     Dates: start: 20190422
  21. LORAZEPAM [Concomitant]
     Active Substance: LORAZEPAM
     Indication: Sleep disorder
     Dosage: 1 MILLIGRAM
     Route: 065
     Dates: start: 2019
  22. NALOXONE HYDROCHLORIDE\TILIDINE HYDROCHLORIDE [Concomitant]
     Active Substance: NALOXONE HYDROCHLORIDE\TILIDINE HYDROCHLORIDE
     Indication: Product used for unknown indication
     Dosage: 50 MILLIGRAM, BID
     Route: 065
     Dates: start: 2020
  23. ALBUTEROL [Concomitant]
     Active Substance: ALBUTEROL
     Indication: Pneumonia
     Dosage: UNK
     Route: 055
     Dates: start: 2020
  24. ALBUTEROL [Concomitant]
     Active Substance: ALBUTEROL
     Indication: Pleural effusion
  25. METOCLOPRAMIDE [Concomitant]
     Active Substance: METOCLOPRAMIDE
     Indication: Nausea
     Dosage: 10 MILLIGRAM, TID
     Route: 048
     Dates: start: 2021
  26. PANTOPRAZOLE SODIUM [Concomitant]
     Active Substance: PANTOPRAZOLE SODIUM
     Indication: Hyperchlorhydria
     Dosage: 40 MILLIGRAM, BID
     Route: 048
  27. RASILEZ [Concomitant]
     Active Substance: ALISKIREN
     Indication: Blood pressure increased
     Dosage: 300 MILLIGRAM, QD
     Route: 048
     Dates: start: 2001, end: 201710
  28. DIGITOXIN [Concomitant]
     Active Substance: DIGITOXIN
     Indication: Atrial fibrillation
     Dosage: 0.07 MILLIGRAM, QD
     Route: 048
     Dates: start: 2014
  29. NEBIVOLOL [Concomitant]
     Active Substance: NEBIVOLOL
     Indication: Atrial fibrillation
     Dosage: 8 MILLIGRAM, BID
     Route: 048
     Dates: start: 2001
  30. NEBIVOLOL [Concomitant]
     Active Substance: NEBIVOLOL
     Indication: Blood pressure increased
  31. AMLODIPINE [Concomitant]
     Active Substance: AMLODIPINE BESYLATE
     Indication: Blood pressure increased
     Dosage: 10 MILLIGRAM, BID
     Route: 048
     Dates: start: 2001
  32. TORSEMIDE [Concomitant]
     Active Substance: TORSEMIDE
     Indication: Blood pressure increased
     Dosage: 5 MILLIGRAM, QD
     Route: 048
     Dates: start: 2001
  33. XARELTO [Concomitant]
     Active Substance: RIVAROXABAN
     Indication: Anticoagulant therapy
     Dosage: 18 MILLIGRAM, QD
     Route: 048
     Dates: start: 201402
  34. CALCIUM CARBONATE\CHOLECALCIFEROL [Concomitant]
     Active Substance: CALCIUM CARBONATE\CHOLECALCIFEROL
     Indication: Vitamin D
     Dosage: 600 MILLIGRAM, QD
     Route: 048
     Dates: start: 201504
  35. LOPERAMIDE [Concomitant]
     Active Substance: LOPERAMIDE
     Indication: Diarrhoea
     Dosage: 2 MILLIGRAM, PRN
     Route: 048
     Dates: start: 201412
  36. CEFTRIAXONE [Concomitant]
     Active Substance: CEFTRIAXONE
     Indication: Urinary tract infection
     Dosage: UNK
     Route: 042
     Dates: start: 201610, end: 20161102
  37. CEFPODOXIME [Concomitant]
     Active Substance: CEFPODOXIME
     Indication: Urinary tract infection
     Dosage: 200 MILLIGRAM, BID
     Route: 048
     Dates: start: 20161103, end: 20161107
  38. BRIVUDINE [Concomitant]
     Active Substance: BRIVUDINE
     Indication: Herpes zoster
     Dosage: UNK UNK, QD
     Route: 048
     Dates: start: 201611, end: 20161109
  39. POTASSIUM CITRATE [Concomitant]
     Active Substance: POTASSIUM CITRATE
     Indication: Hypokalaemia
     Dosage: UNK
     Route: 048
     Dates: start: 201610
  40. SPIRONOLACTONE [Concomitant]
     Active Substance: SPIRONOLACTONE
     Indication: Blood pressure abnormal
     Dosage: UNK
     Route: 048
     Dates: start: 2017
  41. CANDESARTAN [Concomitant]
     Active Substance: CANDESARTAN
     Indication: Urinary tract infection
     Dosage: UNK
     Route: 048
     Dates: start: 201710
  42. MOXONIDINE [Concomitant]
     Active Substance: MOXONIDINE
     Indication: Blood pressure abnormal
     Dosage: UNK
     Route: 065
     Dates: start: 2017
  43. MOXONIDINE [Concomitant]
     Active Substance: MOXONIDINE
     Dosage: 0.20 MILLIGRAM
     Route: 048
     Dates: start: 201810, end: 201908
  44. HYDROCHLOROTHIAZIDE [Concomitant]
     Active Substance: HYDROCHLOROTHIAZIDE
     Indication: Blood pressure increased
     Dosage: UNK
     Route: 065
  45. VITAMIN B12 [Concomitant]
     Active Substance: CYANOCOBALAMIN
     Indication: Vitamin supplementation
     Dosage: UNK
     Route: 065
  46. NOVALGIN (METAMIZOLE SODIUM) [Concomitant]
     Active Substance: METAMIZOLE SODIUM
     Indication: Myelopathy
     Dosage: UNK
     Route: 065
  47. DIMENHYDRINATE [Concomitant]
     Active Substance: DIMENHYDRINATE
     Indication: Nausea
     Dosage: 1000 INTERNATIONAL UNIT
     Route: 065
  48. ONDANSETRON [Concomitant]
     Active Substance: ONDANSETRON
     Indication: Nausea
     Dosage: 8 MILLIGRAM, TID
     Route: 065
     Dates: start: 202001
  49. TRAMADOL [Concomitant]
     Active Substance: TRAMADOL
     Indication: Pain
     Dosage: 20 GTT DROPS
     Route: 048
     Dates: start: 2020

REACTIONS (4)
  - Chronic kidney disease [Not Recovered/Not Resolved]
  - Hepatic steatosis [Not Recovered/Not Resolved]
  - Facial pain [Not Recovered/Not Resolved]
  - Cholelithiasis [Not Recovered/Not Resolved]

NARRATIVE: CASE EVENT DATE: 20190410
